FAERS Safety Report 14658654 (Version 2)
Quarter: 2018Q3

REPORT INFORMATION
  Report Type: Spontaneous
  Country: US (occurrence: US)
  Receive Date: 20180320
  Receipt Date: 20180917
  Transmission Date: 20181010
  Serious: Yes (Other)
  Sender: FDA-Public Use
  Company Number: US-ASTRAZENECA-2018SE31945

PATIENT
  Age: 17081 Day
  Sex: Male
  Weight: 90.7 kg

DRUGS (55)
  1. ZORTRESS [Concomitant]
     Active Substance: EVEROLIMUS
     Indication: RENAL DISORDER
  2. DIOVAN [Concomitant]
     Active Substance: VALSARTAN
  3. PLAVIX [Concomitant]
     Active Substance: CLOPIDOGREL BISULFATE
  4. NEXIUM [Suspect]
     Active Substance: ESOMEPRAZOLE MAGNESIUM
     Indication: GASTROOESOPHAGEAL REFLUX DISEASE
     Route: 048
     Dates: start: 200503, end: 201508
  5. ROLAIDS [Concomitant]
     Active Substance: CALCIUM CARBONATE\MAGNESIUM HYDROXIDE
  6. RENVELA [Concomitant]
     Active Substance: SEVELAMER CARBONATE
     Dosage: 800 MG ORAL TABLET
  7. ZOFRAN [Concomitant]
     Active Substance: ONDANSETRON HYDROCHLORIDE
     Dosage: 8 MG ORAL TABLET
  8. VITAMIN D3 [Concomitant]
     Active Substance: CHOLECALCIFEROL
     Dosage: 10000 IU
  9. MUCINEX [Concomitant]
     Active Substance: GUAIFENESIN
     Dosage: 600 MG
  10. FINASTERIDE. [Concomitant]
     Active Substance: FINASTERIDE
     Dosage: 5 MG ORAL TABLET
  11. TYLENOL [Concomitant]
     Active Substance: ACETAMINOPHEN
     Dosage: 325 MG ORAL TABLET
  12. PANTOPRAZOLE [Concomitant]
     Active Substance: PANTOPRAZOLE
     Dosage: 40 MG ORAL TAB
  13. HYDRALAZINE [Concomitant]
     Active Substance: HYDRALAZINE HYDROCHLORIDE
     Indication: BLOOD PRESSURE MEASUREMENT
     Dates: start: 2007, end: 2014
  14. MIRALAX [Concomitant]
     Active Substance: POLYETHYLENE GLYCOL 3350
     Indication: CONSTIPATION
     Dates: start: 2010, end: 2014
  15. PRAVASTATIN. [Concomitant]
     Active Substance: PRAVASTATIN
     Indication: BLOOD PRESSURE MEASUREMENT
     Dates: start: 2010
  16. COREG [Concomitant]
     Active Substance: CARVEDILOL
  17. LOMOTIL [Concomitant]
     Active Substance: ATROPINE SULFATE\DIPHENOXYLATE HYDROCHLORIDE
     Dosage: 2.5 MG? 0.025 MG ORAL TABLET
  18. KEFLEX [Concomitant]
     Active Substance: CEPHALEXIN
     Dosage: 500 MG
  19. ELIQUIS [Concomitant]
     Active Substance: APIXABAN
     Dosage: 5 MG
  20. ROCEPHIN [Concomitant]
     Active Substance: CEFTRIAXONE SODIUM
  21. SENSIPAR [Concomitant]
     Active Substance: CINACALCET HYDROCHLORIDE
  22. NEORAL [Concomitant]
     Active Substance: CYCLOSPORINE
     Dosage: 4 CAPS DAILY
  23. CELLCEPT [Concomitant]
     Active Substance: MYCOPHENOLATE MOFETIL\MYCOPHENOLATE MOFETIL HYDROCHLORIDE
     Indication: RENAL TRANSPLANT
     Dates: start: 201506
  24. NIFEDIPINE. [Concomitant]
     Active Substance: NIFEDIPINE
     Indication: BLOOD PRESSURE MEASUREMENT
     Dates: start: 2011, end: 2014
  25. PROMETHAZINE [Concomitant]
     Active Substance: PROMETHAZINE\PROMETHAZINE HYDROCHLORIDE
     Indication: ABDOMINAL PAIN UPPER
     Dates: start: 2009
  26. LABETALOL [Concomitant]
     Active Substance: LABETALOL\LABETALOL HYDROCHLORIDE
     Indication: BLOOD PRESSURE MEASUREMENT
     Dates: start: 2008, end: 2016
  27. DIAMOX SEQUELS [Concomitant]
     Active Substance: ACETAZOLAMIDE
     Dosage: 125 MG ORAL TABLET
  28. ULTRAM [Concomitant]
     Active Substance: TRAMADOL HYDROCHLORIDE
     Dosage: 50 MG ORAL TABLET
  29. LEVEMIR [Concomitant]
     Active Substance: INSULIN DETEMIR
     Dosage: 100 UNITS/ML
  30. FLUTICASONE. [Concomitant]
     Active Substance: FLUTICASONE
     Dosage: 50 MCG NASAL SP
  31. LISINOPRIL. [Concomitant]
     Active Substance: LISINOPRIL
     Indication: BLOOD PRESSURE MEASUREMENT
     Dates: start: 2008, end: 2016
  32. AMIODARONE [Concomitant]
     Active Substance: AMIODARONE
     Indication: BLOOD PRESSURE MEASUREMENT
     Dates: start: 2009
  33. CRESTOR [Concomitant]
     Active Substance: ROSUVASTATIN CALCIUM
     Dosage: 10 MG TABLET
  34. ZOLPIDEM [Concomitant]
     Active Substance: ZOLPIDEM\ZOLPIDEM TARTRATE
     Dosage: 5 MG TABLET
  35. GABAPENTIN. [Concomitant]
     Active Substance: GABAPENTIN
     Dosage: 100 MG TABLET
  36. BACTRIM DS [Concomitant]
     Active Substance: SULFAMETHOXAZOLE\TRIMETHOPRIM
     Dosage: 800 MG?160 MG ORAL TABLET
  37. TRULICITY [Concomitant]
     Active Substance: DULAGLUTIDE
     Dosage: 1.5 MG/0.5 ML
  38. ATROPINE. [Concomitant]
     Active Substance: ATROPINE
     Dosage: 0.1 MG/ML
  39. CIPRO [Concomitant]
     Active Substance: CIPROFLOXACIN HYDROCHLORIDE
     Dosage: 250 MG ORAL TAB
  40. NIFEDIPINE. [Concomitant]
     Active Substance: NIFEDIPINE
  41. METOPROLOL. [Concomitant]
     Active Substance: METOPROLOL
     Indication: BLOOD PRESSURE MEASUREMENT
     Dates: start: 2008
  42. ASPIRIN. [Concomitant]
     Active Substance: ASPIRIN
     Indication: CARDIAC DISORDER
  43. NEPHROCAPR [Concomitant]
     Indication: SUPPLEMENTATION THERAPY
     Dates: start: 2016
  44. AMLODIPINE [Concomitant]
     Active Substance: AMLODIPINE BESYLATE
     Indication: BLOOD PRESSURE MEASUREMENT
     Dates: start: 2017
  45. DIAZEPAM. [Concomitant]
     Active Substance: DIAZEPAM
     Dosage: 5 MG TABLET
  46. MULTIVITAMIN [Concomitant]
     Active Substance: VITAMINS
  47. SENOKOT [Concomitant]
     Active Substance: SENNOSIDES
  48. MILK OF MAGNESIA [Concomitant]
     Active Substance: MAGNESIUM HYDROXIDE
     Dosage: 8 % IN 30ML
  49. FERROUS SULFATE. [Concomitant]
     Active Substance: FERROUS SULFATE
  50. NEXIUM [Suspect]
     Active Substance: ESOMEPRAZOLE MAGNESIUM
     Indication: GASTROOESOPHAGEAL REFLUX DISEASE
     Route: 048
     Dates: start: 20120607
  51. ACETAMINOPHEN?HYDROCODONE [Concomitant]
     Active Substance: ACETAMINOPHEN\HYDROCODONE
     Dosage: 325 MG?10 MG TABLET
  52. NOVOLOG [Concomitant]
     Active Substance: INSULIN ASPART
     Dosage: 100 UNITS/ML
  53. NITROSTAT [Concomitant]
     Active Substance: NITROGLYCERIN
     Dosage: 0.4 MG
  54. TYLENOL WITH CODEINE [Concomitant]
     Active Substance: ACETAMINOPHEN\CODEINE PHOSPHATE
     Dosage: 300 MG?30 MG
  55. SODIUM BICARBONATE. [Concomitant]
     Active Substance: SODIUM BICARBONATE

REACTIONS (4)
  - Chronic kidney disease [Not Recovered/Not Resolved]
  - Renal failure [Unknown]
  - End stage renal disease [Not Recovered/Not Resolved]
  - Nephrogenic anaemia [Unknown]

NARRATIVE: CASE EVENT DATE: 20071114
